FAERS Safety Report 7754096-X (Version None)
Quarter: 2011Q3

REPORT INFORMATION
  Report Type: 
  Country: None (occurrence: None)
  Receive Date: 20110915
  Receipt Date: 20110908
  Transmission Date: 20111222
  Serious: Yes (Other)
  Sender: FDA-Public Use
  Company Number: US-AMGEN-USASP2011046128

PATIENT
  Age: 60 Year
  Sex: Male

DRUGS (3)
  1. ENBREL [Suspect]
     Indication: RHEUMATOID ARTHRITIS
     Dosage: 50 MG, QWK
     Dates: start: 20090817
  2. ENBREL [Suspect]
     Indication: PSORIATIC ARTHROPATHY
  3. ENBREL [Suspect]
     Indication: PSORIASIS

REACTIONS (8)
  - CHEST INJURY [None]
  - HEART INJURY [None]
  - MYALGIA [None]
  - DYSPNOEA [None]
  - CONTUSION [None]
  - MYOSITIS [None]
  - PHARYNGEAL OEDEMA [None]
  - ROAD TRAFFIC ACCIDENT [None]
